FAERS Safety Report 18485247 (Version 1)
Quarter: 2020Q4

REPORT INFORMATION
  Report Type: Spontaneous
  Country: US (occurrence: US)
  Receive Date: 20201109
  Receipt Date: 20201109
  Transmission Date: 20210114
  Serious: Yes (Other)
  Sender: FDA-Public Use
  Company Number: None

PATIENT
  Age: 80 Year
  Sex: Female
  Weight: 50.4 kg

DRUGS (9)
  1. LIDOCAINE-PRILOCAINE 2.5-2.5% [Concomitant]
  2. ADVAIR DISKUS [Concomitant]
     Active Substance: FLUTICASONE PROPIONATE\SALMETEROL XINAFOATE
  3. ALBUTEROL SULFATE HFA 90 MCG/ACT [Concomitant]
  4. ONDANSETRON 4MG [Concomitant]
     Active Substance: ONDANSETRON
  5. PROCHLORPERAZINE 10 MG [Concomitant]
     Active Substance: PROCHLORPERAZINE
  6. TABRECTA [Suspect]
     Active Substance: CAPMATINIB
     Indication: LUNG NEOPLASM MALIGNANT
     Route: 048
     Dates: start: 20201019
  7. OMEPRAZOLE 20MG [Concomitant]
     Active Substance: OMEPRAZOLE
  8. HYDROCODONE-ACETAMINOPHEN 10-325 MG [Concomitant]
  9. DIAZEPAM 5MG [Concomitant]
     Active Substance: DIAZEPAM

REACTIONS (1)
  - Therapy interrupted [None]

NARRATIVE: CASE EVENT DATE: 20201109
